FAERS Safety Report 24437148 (Version 1)
Quarter: 2024Q4

REPORT INFORMATION
  Report Type: Spontaneous
  Country: US (occurrence: None)
  Receive Date: 20241011
  Receipt Date: 20241011
  Transmission Date: 20250115
  Serious: Yes (Hospitalization)
  Sender: Public
  Company Number: None

PATIENT
  Age: 76 Year
  Sex: Male

DRUGS (3)
  1. EMPAGLIFLOZIN [Suspect]
     Active Substance: EMPAGLIFLOZIN
     Indication: Cardiac failure congestive
     Route: 048
     Dates: start: 20231122, end: 20240617
  2. METOPROLOL [Suspect]
     Active Substance: METOPROLOL
  3. ENTRESTO [Suspect]
     Active Substance: SACUBITRIL\VALSARTAN

REACTIONS (6)
  - Urinary tract infection [None]
  - Infection [None]
  - Hypotension [None]
  - Sepsis [None]
  - Drug hypersensitivity [None]
  - Therapy interrupted [None]

NARRATIVE: CASE EVENT DATE: 20240617
